FAERS Safety Report 5132271-0 (Version None)
Quarter: 2006Q4

REPORT INFORMATION
  Report Type: 
  Country: None (occurrence: None)
  Receive Date: 20061017
  Receipt Date: 20061006
  Transmission Date: 20070319
  Serious: Yes (Hospitalization)
  Sender: FDA-Public Use
  Company Number: 230859

PATIENT
  Age: 65 Year
  Sex: Male

DRUGS (10)
  1. AVASTIN [Suspect]
     Indication: METASTATIC GASTRIC CANCER
     Dosage: IV DRIP
     Route: 041
     Dates: start: 20060921, end: 20060921
  2. TEGAFUR (TEGAFUR) [Suspect]
     Indication: METASTATIC GASTRIC CANCER
     Dosage: 35 MG
     Dates: start: 20060921
  3. GIMERACIL (GIMERACIL) [Suspect]
     Indication: METASTATIC GASTRIC CANCER
     Dates: start: 20060921
  4. OTERACIL POTASSIUM (OTERACIL POTASSIUM) [Suspect]
     Indication: METASTATIC GASTRIC CANCER
     Dates: start: 20060921
  5. OXALIPLATIN [Suspect]
     Indication: METASTATIC GASTRIC CANCER
     Dosage: IV DRIP
     Route: 041
  6. DOXAZOSIN MESYLATE [Concomitant]
  7. PREVACID [Concomitant]
  8. XANAX [Concomitant]
  9. VITAMIN CAP [Concomitant]
  10. ATENOLOL [Concomitant]

REACTIONS (1)
  - CONVULSION [None]
